FAERS Safety Report 4482349-X (Version None)
Quarter: 2004Q4

REPORT INFORMATION
  Report Type: 
  Country: None (occurrence: None)
  Receive Date: 20041022
  Receipt Date: 20041011
  Transmission Date: 20050328
  Serious: Yes (Hospitalization)
  Sender: FDA-Public Use
  Company Number: FR-ROCHE-382938

PATIENT
  Age: 38 Year
  Sex: Male

DRUGS (7)
  1. FUZEON [Suspect]
     Indication: HIV INFECTION
     Route: 058
     Dates: start: 20040708
  2. STILNOX [Suspect]
     Indication: SLEEP DISORDER
     Route: 048
     Dates: end: 20040830
  3. IZILOX [Suspect]
     Indication: DRUG USE FOR UNKNOWN INDICATION
     Route: 048
     Dates: start: 20040720, end: 20040730
  4. EPIVIR [Concomitant]
     Indication: HIV INFECTION
     Dates: start: 20040708
  5. REYATAZ [Concomitant]
     Indication: HIV INFECTION
     Route: 048
     Dates: start: 20040708
  6. ZIAGEN [Concomitant]
     Indication: HIV INFECTION
     Route: 048
     Dates: start: 20040708
  7. NORVIR [Concomitant]
     Indication: HIV INFECTION
     Route: 048
     Dates: start: 20040708

REACTIONS (4)
  - AGGRESSION [None]
  - DISORIENTATION [None]
  - MEMORY IMPAIRMENT [None]
  - SLEEP DISORDER [None]
